FAERS Safety Report 24276281 (Version 1)
Quarter: 2024Q3

REPORT INFORMATION
  Report Type: Spontaneous
  Country: GB (occurrence: GB)
  Receive Date: 20240903
  Receipt Date: 20240903
  Transmission Date: 20241016
  Serious: Yes (Other)
  Sender: Carnegie Pharmaceuticals
  Company Number: GB-CARNEGIE-000021

PATIENT
  Age: 87 Year
  Sex: Female

DRUGS (1)
  1. LATANOPROST [Suspect]
     Active Substance: LATANOPROST
     Indication: Normal tension glaucoma
     Dosage: 50 MICROGRAM PER ML LATANOPROST EYE DROPS
     Route: 047

REACTIONS (1)
  - Severe cutaneous adverse reaction [Recovered/Resolved]
